FAERS Safety Report 7763930 (Version 3)
Quarter: 2012Q4

REPORT INFORMATION
  Report Type: 
  Country: US (occurrence: US)
  Receive Date: 20110118
  Receipt Date: 20121120
  Transmission Date: 20130627
  Serious: No
  Sender: FDA-Public Use
  Company Number: US-PFIZER INC-2011008438

PATIENT
  Age: 61 Year
  Sex: Female
  Weight: 113 kg

DRUGS (4)
  1. EFFEXOR XR [Suspect]
     Indication: DEPRESSION
     Dosage: 150 mg, 2x/day
     Route: 048
     Dates: start: 2000
  2. EFFEXOR XR [Suspect]
     Indication: ANXIETY
  3. PAXIL [Suspect]
     Indication: DEPRESSION
     Dosage: UNK
  4. PAXIL [Suspect]
     Indication: ANXIETY

REACTIONS (8)
  - Depression [Not Recovered/Not Resolved]
  - Anxiety [Not Recovered/Not Resolved]
  - Irritability [Not Recovered/Not Resolved]
  - Muscle spasms [Not Recovered/Not Resolved]
  - Drug effect decreased [Unknown]
  - Drug ineffective [Unknown]
  - Feeling abnormal [Unknown]
  - Incorrect product storage [Unknown]
